FAERS Safety Report 4612915-X (Version None)
Quarter: 2005Q1

REPORT INFORMATION
  Report Type: 
  Country: None (occurrence: None)
  Receive Date: 20050318
  Receipt Date: 20050309
  Transmission Date: 20050727
  Serious: Yes (Other)
  Sender: FDA-Public Use
  Company Number: CH-GLAXOSMITHKLINE-B0375064A

PATIENT
  Age: 61 Year
  Sex: Female
  Weight: 53 kg

DRUGS (17)
  1. LAMICTAL [Suspect]
     Indication: DRUG USE FOR UNKNOWN INDICATION
     Dosage: 50MG PER DAY
     Route: 048
     Dates: start: 20041201, end: 20050121
  2. DURAGESIC-100 [Concomitant]
     Indication: PAIN
     Dosage: 5MG TWO TIMES PER WEEK
     Route: 062
     Dates: start: 20041201, end: 20050111
  3. BRUFEN [Concomitant]
     Indication: PAIN
     Dosage: 600MG FOUR TIMES PER DAY
     Route: 048
     Dates: start: 20041201, end: 20050113
  4. BELOC [Concomitant]
     Indication: DRUG USE FOR UNKNOWN INDICATION
     Dosage: 200MG PER DAY
     Route: 048
  5. DEPAKENE [Concomitant]
     Indication: DRUG USE FOR UNKNOWN INDICATION
     Dosage: 600MG PER DAY
     Route: 048
     Dates: start: 20041201, end: 20050112
  6. SEROPRAM [Concomitant]
     Indication: DRUG USE FOR UNKNOWN INDICATION
     Dosage: 20MG PER DAY
     Route: 048
  7. AMANTADINE HCL [Concomitant]
     Indication: DRUG USE FOR UNKNOWN INDICATION
     Dosage: 100MG THREE TIMES PER DAY
     Route: 048
     Dates: end: 20050117
  8. NEXIUM [Concomitant]
     Indication: DRUG USE FOR UNKNOWN INDICATION
     Dosage: 44.5MG PER DAY
     Route: 048
  9. PERENTEROL [Concomitant]
     Indication: DRUG USE FOR UNKNOWN INDICATION
     Dosage: 1U THREE TIMES PER DAY
     Route: 048
     Dates: end: 20050117
  10. MAGNESIOCARD [Concomitant]
     Indication: DRUG USE FOR UNKNOWN INDICATION
     Dosage: 10MG THREE TIMES PER DAY
     Route: 048
     Dates: end: 20050117
  11. MARCOUMAR [Concomitant]
     Indication: DRUG USE FOR UNKNOWN INDICATION
     Dosage: 3MG UNKNOWN
     Route: 048
     Dates: start: 20041201, end: 20050117
  12. METOCLOPRAMIDE HYDROCHLORIDE [Concomitant]
     Indication: DRUG USE FOR UNKNOWN INDICATION
     Dosage: 10MG THREE TIMES PER DAY
     Route: 042
  13. MERONEM [Concomitant]
     Indication: DRUG USE FOR UNKNOWN INDICATION
     Dosage: 1G THREE TIMES PER DAY
     Route: 042
     Dates: end: 20050108
  14. VANCOMYCIN [Concomitant]
     Indication: DRUG USE FOR UNKNOWN INDICATION
     Dosage: 500MG TWICE PER DAY
     Route: 042
     Dates: end: 20050108
  15. ATROVENT [Concomitant]
     Indication: DRUG USE FOR UNKNOWN INDICATION
     Route: 055
  16. FLUIMUCIL [Concomitant]
     Indication: DRUG USE FOR UNKNOWN INDICATION
     Dosage: 1U THREE TIMES PER DAY
     Route: 055
     Dates: end: 20050108
  17. URBANYL [Concomitant]
     Indication: DRUG USE FOR UNKNOWN INDICATION
     Dosage: 10MG UNKNOWN
     Route: 065

REACTIONS (8)
  - C-REACTIVE PROTEIN INCREASED [None]
  - CONFUSIONAL STATE [None]
  - DIARRHOEA [None]
  - EXANTHEM [None]
  - HALLUCINATION [None]
  - NORMOCHROMIC NORMOCYTIC ANAEMIA [None]
  - RESTLESSNESS [None]
  - TREMOR [None]
